FAERS Safety Report 18778691 (Version 1)
Quarter: 2021Q1

REPORT INFORMATION
  Report Type: Spontaneous
  Country: US (occurrence: US)
  Receive Date: 20210124
  Receipt Date: 20210124
  Transmission Date: 20210419
  Serious: No
  Sender: FDA-Public Use
  Company Number: US-SA-2021SA017519

PATIENT
  Age: 63 Year
  Sex: Male

DRUGS (18)
  1. BENZONATATE. [Concomitant]
     Active Substance: BENZONATATE
  2. MELATONIN [Concomitant]
     Active Substance: MELATONIN
  3. TACROLIMUS. [Concomitant]
     Active Substance: TACROLIMUS
  4. AMLODIPINE [Concomitant]
     Active Substance: AMLODIPINE BESYLATE
  5. GLIMEPIRIDE. [Concomitant]
     Active Substance: GLIMEPIRIDE
  6. CARVEDILOL. [Concomitant]
     Active Substance: CARVEDILOL
  7. PRAMIPEXOLE. [Concomitant]
     Active Substance: PRAMIPEXOLE
  8. ATORVASTATIN [Concomitant]
     Active Substance: ATORVASTATIN
  9. CLOBETASOL [Concomitant]
     Active Substance: CLOBETASOL
  10. LOSARTAN. [Concomitant]
     Active Substance: LOSARTAN
  11. OMEPRAZOLE. [Concomitant]
     Active Substance: OMEPRAZOLE
  12. TRADJENTA [Concomitant]
     Active Substance: LINAGLIPTIN
  13. VICTOZA [Concomitant]
     Active Substance: LIRAGLUTIDE
  14. BUSPIRONE [Concomitant]
     Active Substance: BUSPIRONE HYDROCHLORIDE
  15. TRESIBA [Concomitant]
     Active Substance: INSULIN DEGLUDEC
  16. TRIAMCINOLONE [Concomitant]
     Active Substance: TRIAMCINOLONE
  17. DUPIXENT [Suspect]
     Active Substance: DUPILUMAB
     Indication: DERMATITIS ATOPIC
     Dosage: 300 MG, QOW
     Route: 058
     Dates: start: 20200604
  18. ASPIRIN 81 [Concomitant]
     Active Substance: ASPIRIN

REACTIONS (2)
  - Product dose omission issue [Unknown]
  - Dermatitis atopic [Unknown]
